FAERS Safety Report 17424015 (Version 1)
Quarter: 2020Q1

REPORT INFORMATION
  Report Type: Spontaneous
  Country: DE (occurrence: DE)
  Receive Date: 20200217
  Receipt Date: 20200217
  Transmission Date: 20200409
  Serious: Yes (Other)
  Sender: FDA-Public Use
  Company Number: DE-DSJP-DSE-2020-105349

PATIENT

DRUGS (2)
  1. BISOPROLOL [Concomitant]
     Active Substance: BISOPROLOL
     Indication: PRODUCT USED FOR UNKNOWN INDICATION
     Dosage: 5 MG, UNK
     Dates: start: 20090209
  2. VOCADO [Suspect]
     Active Substance: AMLODIPINE BESYLATE\OLMESARTAN MEDOXOMIL
     Indication: PRODUCT USED FOR UNKNOWN INDICATION
     Dosage: 20/5 MG, UNK
     Route: 048
     Dates: start: 20090209

REACTIONS (9)
  - Malaise [Unknown]
  - Erectile dysfunction [Unknown]
  - Dry mouth [Unknown]
  - Hyperhidrosis [Unknown]
  - Libido decreased [Unknown]
  - Nausea [Unknown]
  - Visual impairment [Unknown]
  - Sleep disorder [Unknown]
  - Myalgia [Unknown]

NARRATIVE: CASE EVENT DATE: 20090209
